FAERS Safety Report 25593161 (Version 1)
Quarter: 2025Q3

REPORT INFORMATION
  Report Type: Spontaneous
  Country: AU (occurrence: AU)
  Receive Date: 20250722
  Receipt Date: 20250722
  Transmission Date: 20251020
  Serious: Yes (Other)
  Sender: PFIZER
  Company Number: AU-TAKEDA-2025TUS063608

PATIENT
  Age: 60 Year
  Sex: Male

DRUGS (4)
  1. PANTOPRAZOLE [Suspect]
     Active Substance: PANTOPRAZOLE
     Route: 048
  2. ASPIRIN [Suspect]
     Active Substance: ASPIRIN
     Route: 048
  3. ROSUVASTATIN CALCIUM [Suspect]
     Active Substance: ROSUVASTATIN CALCIUM
     Route: 048
  4. TICAGRELOR [Suspect]
     Active Substance: TICAGRELOR
     Dosage: 180 MILLIGRAM, QD
     Route: 048

REACTIONS (5)
  - Gastrointestinal ulcer [Unknown]
  - Abdominal discomfort [Recovering/Resolving]
  - Drug ineffective [Unknown]
  - Gallbladder disorder [Unknown]
  - Helicobacter infection [Unknown]
